FAERS Safety Report 17149170 (Version 1)
Quarter: 2019Q4

REPORT INFORMATION
  Report Type: Spontaneous
  Country: US (occurrence: US)
  Receive Date: 20191213
  Receipt Date: 20191213
  Transmission Date: 20200122
  Serious: Yes (Life-Threatening, Other)
  Sender: FDA-Public Use
  Company Number: CA-RECKITT BENCKISER HEALTHCARE INT LIMITED-RB-93061-2019

PATIENT
  Age: 61 Year
  Sex: Male

DRUGS (1)
  1. CEPACOL INSTAMAX SORE THROAT ARCTIC CHERRY [Suspect]
     Active Substance: BENZOCAINE\MENTHOL
     Dosage: 1 DOSAGE FORM, SINGLE
     Route: 048
     Dates: start: 20191122, end: 20191122

REACTIONS (4)
  - Ill-defined disorder [Recovered/Resolved]
  - Throat tightness [Recovered/Resolved]
  - Dyspnoea [Recovered/Resolved]
  - Mouth swelling [Recovered/Resolved]

NARRATIVE: CASE EVENT DATE: 20191122
